FAERS Safety Report 9577505 (Version 1)
Quarter: 2013Q4

REPORT INFORMATION
  Report Type: Spontaneous
  Country: US (occurrence: US)
  Receive Date: 20131001
  Receipt Date: 20131001
  Transmission Date: 20140711
  Serious: No
  Sender: FDA-Public Use
  Company Number: US-AMGEN-USASP2013008372

PATIENT
  Age: 52 Year
  Sex: Male
  Weight: 99.77 kg

DRUGS (3)
  1. ENBREL [Suspect]
     Indication: PSORIASIS
     Dosage: 50 MG, QWK
     Route: 058
  2. CLOBETASOL 0.05% [Concomitant]
     Dosage: UNK
  3. ASA [Concomitant]
     Dosage: 81 MG, UNK

REACTIONS (1)
  - Influenza like illness [Unknown]
